FAERS Safety Report 20577837 (Version 1)
Quarter: 2022Q1

REPORT INFORMATION
  Report Type: Report from Study
  Country: FR (occurrence: None)
  Receive Date: 20220310
  Receipt Date: 20220310
  Transmission Date: 20220423
  Serious: Yes (Hospitalization, Other)
  Sender: FDA-Public Use
  Company Number: 2022A099934

PATIENT
  Age: 74 Year
  Sex: Male
  Weight: 82 kg

DRUGS (9)
  1. EVUSHELD [Suspect]
     Active Substance: CILGAVIMAB\TIXAGEVIMAB
     Indication: COVID-19 prophylaxis
     Dosage: TIXAGEVIMAB 150 MG AND CILGAVIMAB 150 MG
     Route: 030
     Dates: start: 20220113, end: 20220113
  2. DARATUMUMAB [Concomitant]
     Active Substance: DARATUMUMAB
  3. CARFILZOMB [Concomitant]
  4. DEXAMETHASONE POST AUTOGRAFT (2ND LINE TREATMENT) [Concomitant]
  5. VALACYCLOVIR HYDROCHLORIDE [Concomitant]
     Active Substance: VALACYCLOVIR HYDROCHLORIDE
  6. BACTRIM 800 [Concomitant]
     Dosage: 1 TABLET 3 TIMES A WEEK (MON, WED, FRI),
  7. FOLIC ACID [Concomitant]
     Active Substance: FOLIC ACID
     Dosage: 1 TABLET 3 TIMES A WEEK (TUE, THU, SAT)
     Route: 048
  8. LERCANIDIPINE [Concomitant]
     Active Substance: LERCANIDIPINE
     Dosage: 10 MG AT 1 TABLET IN THE MORNING AND IN THE EVENING
     Route: 048
  9. CANDESARTAN CILEXETIL [Concomitant]
     Active Substance: CANDESARTAN CILEXETIL
     Dosage: 16 MG IN THE MORNING

REACTIONS (1)
  - Retinal vein occlusion [Recovering/Resolving]

NARRATIVE: CASE EVENT DATE: 20220126
